FAERS Safety Report 8793977 (Version 2)
Quarter: 2013Q1

REPORT INFORMATION
  Report Type: Spontaneous
  Country: FR (occurrence: FR)
  Receive Date: 20120918
  Receipt Date: 20130322
  Transmission Date: 20140127
  Serious: Yes (Other)
  Sender: FDA-Public Use
  Company Number: FR-BIOGENIDEC-2012BI038162

PATIENT
  Age: 29 Year
  Sex: Female

DRUGS (4)
  1. AVONEX [Suspect]
     Indication: MULTIPLE SCLEROSIS
     Route: 030
     Dates: start: 20110606, end: 20120830
  2. BIPROFENID [Concomitant]
     Route: 048
     Dates: start: 20110606, end: 20120830
  3. LEVOTHYROX [Concomitant]
     Route: 048
     Dates: start: 20111115
  4. MINIDRIL [Concomitant]
     Route: 048
     Dates: start: 2008

REACTIONS (2)
  - Sarcoidosis [Not Recovered/Not Resolved]
  - Lymphadenopathy mediastinal [Not Recovered/Not Resolved]
